FAERS Safety Report 14743759 (Version 1)
Quarter: 2018Q2

REPORT INFORMATION
  Report Type: Spontaneous
  Country: JP (occurrence: JP)
  Receive Date: 20180410
  Receipt Date: 20180410
  Transmission Date: 20180711
  Serious: Yes (Other)
  Sender: FDA-Public Use
  Company Number: PHHY2018JP055312

PATIENT
  Age: 69 Year
  Sex: Female
  Weight: 59.3 kg

DRUGS (1)
  1. CILOSTAZOL. [Suspect]
     Active Substance: CILOSTAZOL
     Indication: PROPHYLAXIS
     Dosage: 50 MG, BID
     Route: 065

REACTIONS (5)
  - Tubulointerstitial nephritis [Unknown]
  - Type IV hypersensitivity reaction [Unknown]
  - Haematuria [Unknown]
  - Globulinuria [Unknown]
  - Proteinuria [Unknown]
